FAERS Safety Report 9034551 (Version 2)
Quarter: 2013Q1

REPORT INFORMATION
  Report Type: Spontaneous
  Country: US (occurrence: None)
  Receive Date: 20121218
  Receipt Date: 20130225
  Transmission Date: 20140127
  Serious: Yes (Death)
  Sender: FDA-Public Use
  Company Number: 2012PROUSA02336

PATIENT
  Age: 84 Year
  Sex: Male
  Weight: 115.2 kg

DRUGS (1)
  1. PROVENGE (SIPULEUCEL-T) SUSPENSION, 250 ML [Suspect]
     Indication: PROSTATE CANCER METASTATIC
     Dosage: 250 ML,  SINGLE,  INTRAVENOUS?11/16/2012 TO 11/16/2012
     Route: 042
     Dates: start: 20121116, end: 20121116

REACTIONS (1)
  - Respiratory arrest [None]
